FAERS Safety Report 15334326 (Version 1)
Quarter: 2018Q3

REPORT INFORMATION
  Report Type: Spontaneous
  Country: US (occurrence: US)
  Receive Date: 20180830
  Receipt Date: 20180830
  Transmission Date: 20181010
  Serious: Yes (Hospitalization)
  Sender: FDA-Public Use
  Company Number: US-JNJFOC-20180837717

PATIENT
  Age: 55 Year
  Sex: Female

DRUGS (1)
  1. INVOKANA [Suspect]
     Active Substance: CANAGLIFLOZIN
     Indication: TYPE 2 DIABETES MELLITUS
     Dosage: VARYING DOSES OF 100 MG AND 300 MG
     Route: 048
     Dates: start: 20150327, end: 20160827

REACTIONS (4)
  - Diabetic ulcer [Unknown]
  - Acute kidney injury [Unknown]
  - Osteomyelitis chronic [Unknown]
  - Toe amputation [Unknown]

NARRATIVE: CASE EVENT DATE: 20150530
